FAERS Safety Report 14942674 (Version 3)
Quarter: 2020Q1

REPORT INFORMATION
  Report Type: Spontaneous
  Country: NL (occurrence: NL)
  Receive Date: 20180528
  Receipt Date: 20200122
  Transmission Date: 20200409
  Serious: Yes (Hospitalization, Other)
  Sender: FDA-Public Use
  Company Number: NL-ROCHE-2128650

PATIENT
  Age: 35 Year
  Sex: Female
  Weight: 49 kg

DRUGS (2)
  1. OCREVUS [Suspect]
     Active Substance: OCRELIZUMAB
     Indication: RELAPSING-REMITTING MULTIPLE SCLEROSIS
     Route: 065
     Dates: start: 20180426, end: 20180523
  2. OCREVUS [Suspect]
     Active Substance: OCRELIZUMAB
     Route: 065
     Dates: start: 20180509

REACTIONS (3)
  - Facial paresis [Recovering/Resolving]
  - Ear pain [Unknown]
  - Varicella zoster virus infection [Not Recovered/Not Resolved]

NARRATIVE: CASE EVENT DATE: 20180511
